FAERS Safety Report 9520864 (Version 1)
Quarter: 2013Q3

REPORT INFORMATION
  Report Type: Spontaneous
  Country: US (occurrence: None)
  Receive Date: 20130911
  Receipt Date: 20130911
  Transmission Date: 20140515
  Serious: Yes (Death, Hospitalization)
  Sender: FDA-Public Use
  Company Number: UTC-037615

PATIENT
  Age: 29 Year
  Sex: Female
  Weight: 134 kg

DRUGS (2)
  1. TYVASO [Suspect]
     Indication: COR PULMONALE CHRONIC
     Dosage: 18-54 MCG (4 IN 1 D) , INHALATION
     Route: 055
     Dates: start: 20130702
  2. SILDENAFIL (UNKNOWN) [Concomitant]

REACTIONS (1)
  - Death [None]
